FAERS Safety Report 9714302 (Version 1)
Quarter: 2013Q4

REPORT INFORMATION
  Report Type: Spontaneous
  Country: US (occurrence: US)
  Receive Date: 20131126
  Receipt Date: 20131126
  Transmission Date: 20140711
  Serious: No
  Sender: FDA-Public Use
  Company Number: US-GALDERMA-US13000177

PATIENT
  Age: 57 Year
  Sex: Female

DRUGS (2)
  1. CAPEX SHAMPOO (FLUOCINOLONE ACETONIDE) TOPICAL SHAMPOO, 0.01% [Suspect]
     Indication: PRURITUS
     Route: 061
     Dates: start: 201206
  2. AVEDA HAIR CONDITIONER [Concomitant]
     Indication: PRURITUS
     Route: 061

REACTIONS (2)
  - Hair colour changes [Not Recovered/Not Resolved]
  - Off label use [Not Recovered/Not Resolved]
